FAERS Safety Report 5319767-3 (Version None)
Quarter: 2007Q1

REPORT INFORMATION
  Report Type: 
  Country: None (occurrence: None)
  Receive Date: 20070205
  Receipt Date: 20060413
  Transmission Date: 20070707
  Serious: Yes (Other)
  Sender: FDA-Public Use
  Company Number: PHEH2006US04393

PATIENT
  Age: 10 Year
  Sex: Male

DRUGS (1)
  1. RITALIN [Suspect]
     Indication: ATTENTION DEFICIT/HYPERACTIVITY DISORDER
     Dosage: 5 ML, BID, ORAL
     Route: 048
     Dates: start: 20031030

REACTIONS (4)
  - HEART RATE INCREASED [None]
  - NAUSEA [None]
  - PHARYNGITIS STREPTOCOCCAL [None]
  - VOMITING [None]
